FAERS Safety Report 8931231 (Version 2)
Quarter: 2012Q4

REPORT INFORMATION
  Report Type: 
  Country: JP (occurrence: JP)
  Receive Date: 20121128
  Receipt Date: 20121204
  Transmission Date: 20130627
  Serious: Yes (Death, Hospitalization, Other)
  Sender: FDA-Public Use
  Company Number: JP-BAYER-2012-122136

PATIENT
  Age: 57 Year
  Sex: Male

DRUGS (2)
  1. BAYASPIRIN [Suspect]
     Indication: CEREBRAL ARTERIAL ANEURYSM
     Dosage: 100 mg, UNK
     Route: 048
  2. UNFRACTIONATED HEPARIN [Suspect]
     Indication: CEREBRAL ARTERIAL ANEURYSM
     Dosage: 10000 units/day
     Route: 041

REACTIONS (2)
  - Subarachnoid haemorrhage [Fatal]
  - Coma [None]
